FAERS Safety Report 14583257 (Version 1)
Quarter: 2018Q1

REPORT INFORMATION
  Report Type: Spontaneous
  Country: US (occurrence: US)
  Receive Date: 20180228
  Receipt Date: 20180228
  Transmission Date: 20180509
  Serious: No
  Sender: FDA-Public Use
  Company Number: US-TAIHO ONCOLOGY INC-EU-2018-00309

PATIENT
  Sex: Female

DRUGS (21)
  1. OXYCODONE [Concomitant]
     Active Substance: OXYCODONE
     Dosage: NI
  2. CODEINE SULFATE. [Concomitant]
     Active Substance: CODEINE SULFATE
     Dosage: NI
  3. QVAR [Concomitant]
     Active Substance: BECLOMETHASONE DIPROPIONATE
     Dosage: NI
  4. BENADRYL [Concomitant]
     Active Substance: DIPHENHYDRAMINE HYDROCHLORIDE
     Dosage: NI
  5. PARACETAMOL/HYDROCODONE BITARTRATE [Concomitant]
     Dosage: NI
  6. PROMETHAZINE [Concomitant]
     Active Substance: PROMETHAZINE\PROMETHAZINE HYDROCHLORIDE
     Dosage: NI
  7. LONSURF [Suspect]
     Active Substance: TIPIRACIL HYDROCHLORIDE\TRIFLURIDINE
     Indication: COLON CANCER
     Route: 048
     Dates: start: 20171023
  8. XANAX [Concomitant]
     Active Substance: ALPRAZOLAM
     Dosage: NI
  9. DURAGESIC [Concomitant]
     Active Substance: FENTANYL
     Dosage: NI
  10. LOSARTAN. [Concomitant]
     Active Substance: LOSARTAN
     Dosage: NI
  11. MEDROL [Concomitant]
     Active Substance: METHYLPREDNISOLONE
     Dosage: NI
  12. TESSALON [Concomitant]
     Active Substance: BENZONATATE
     Dosage: NI
  13. AMLODIPINE [Concomitant]
     Active Substance: AMLODIPINE BESYLATE
     Dosage: NI
  14. LEVOTHYROXINE. [Concomitant]
     Active Substance: LEVOTHYROXINE
     Dosage: NI
  15. LORAZEPAM. [Concomitant]
     Active Substance: LORAZEPAM
     Dosage: NI
  16. METOPROLOL. [Concomitant]
     Active Substance: METOPROLOL
     Dosage: NI
  17. TRIAMCINOLONE [Concomitant]
     Active Substance: TRIAMCINOLONE
     Dosage: NI
  18. LEVOFLOXACIN. [Concomitant]
     Active Substance: LEVOFLOXACIN
     Dosage: NI
  19. LIDOCAINE. [Concomitant]
     Active Substance: LIDOCAINE
     Dosage: NI
  20. ACETYLSALICYLIC ACID [Concomitant]
     Active Substance: ASPIRIN
     Dosage: NI
  21. PREDNISONE. [Concomitant]
     Active Substance: PREDNISONE
     Dosage: NI

REACTIONS (2)
  - Abdominal pain upper [Unknown]
  - Vomiting [Unknown]

NARRATIVE: CASE EVENT DATE: 2017
